FAERS Safety Report 18143553 (Version 1)
Quarter: 2020Q3

REPORT INFORMATION
  Report Type: Spontaneous
  Country: DK (occurrence: DK)
  Receive Date: 20200812
  Receipt Date: 20200812
  Transmission Date: 20201103
  Serious: Yes (Other)
  Sender: FDA-Public Use
  Company Number: DK-BAXTER-2020BAX015882

PATIENT
  Age: 4 Year
  Sex: Male
  Weight: 24 kg

DRUGS (1)
  1. SENDOXAN [Suspect]
     Active Substance: CYCLOPHOSPHAMIDE
     Indication: EWING^S SARCOMA
     Dosage: STRENGTH: 1G. THE PATIENT EXPERIENCED ALL THE ADR DURING HIS FOURTH TREATMENT
     Route: 042
     Dates: start: 201901, end: 20190814

REACTIONS (6)
  - Tachycardia [Unknown]
  - Chest discomfort [Unknown]
  - Flushing [Unknown]
  - Oxygen saturation decreased [Unknown]
  - Anaphylactic reaction [Recovered/Resolved]
  - Use of accessory respiratory muscles [Unknown]

NARRATIVE: CASE EVENT DATE: 20190501
